FAERS Safety Report 5325751-6 (Version None)
Quarter: 2007Q2

REPORT INFORMATION
  Report Type: 
  Country: None (occurrence: None)
  Receive Date: 20070509
  Receipt Date: 20070501
  Transmission Date: 20071010
  Serious: Yes (Other)
  Sender: FDA-Public Use
  Company Number: 2007SP006186

PATIENT
  Age: 36 Year
  Sex: Male

DRUGS (14)
  1. PEG-INTRON [Suspect]
     Indication: HEPATITIS C
     Dosage: 150 MCG; QW; IM
     Route: 030
     Dates: start: 20061017, end: 20070323
  2. RIBAVIRIN [Suspect]
     Indication: HEPATITIS C
     Dosage: 1200 MG;QD;PO
     Route: 048
     Dates: start: 20061017, end: 20070323
  3. NIFEDIPINE (CON.) [Concomitant]
  4. SOMA (CON.) [Concomitant]
  5. AMBIEN (CON.) [Concomitant]
  6. SEROQUEL (CON.) [Concomitant]
  7. COMBIVENT (CON.) [Concomitant]
  8. ADVAIR (CON.) [Concomitant]
  9. LORATADINE (CON.) [Concomitant]
  10. VISTARIL (CON.) [Concomitant]
  11. NEURONTIN (CON.) [Concomitant]
  12. CELEXA (CON.) [Concomitant]
  13. DILANTIN (CON.) [Concomitant]
  14. ZANTAC (CON.) [Concomitant]

REACTIONS (14)
  - CONTUSION [None]
  - DECREASED IMMUNE RESPONSIVENESS [None]
  - EMPHYSEMA [None]
  - HAEMOGLOBIN DECREASED [None]
  - HEART VALVE INSUFFICIENCY [None]
  - INJECTION SITE ERYTHEMA [None]
  - LUNG HYPERINFLATION [None]
  - OXYGEN SATURATION DECREASED [None]
  - PLATELET COUNT DECREASED [None]
  - RED BLOOD CELL COUNT DECREASED [None]
  - SKIN EXFOLIATION [None]
  - SKIN WRINKLING [None]
  - STOMATITIS [None]
  - WHITE BLOOD CELL COUNT DECREASED [None]
